FAERS Safety Report 5083279-5 (Version None)
Quarter: 2006Q3

REPORT INFORMATION
  Report Type: 
  Country: None (occurrence: None)
  Receive Date: 20060818
  Receipt Date: 20060810
  Transmission Date: 20061208
  Serious: Yes (Other)
  Sender: FDA-Public Use
  Company Number: US-JNJFOC-20060504607

PATIENT
  Sex: Female
  Weight: 72.58 kg

DRUGS (9)
  1. REMICADE [Suspect]
     Route: 042
  2. REMICADE [Suspect]
     Indication: RHEUMATOID ARTHRITIS
     Dosage: 4 VIALS
     Route: 042
  3. ACTONEL [Concomitant]
  4. NORVASC [Concomitant]
     Dosage: DURATION FOR 6-8 MONTHS
  5. PREDNISONE [Concomitant]
     Dosage: FOR ^SEVERAL YEARS^
  6. VITAMIN B-12 [Concomitant]
  7. SEROQUEL [Concomitant]
     Indication: DEMENTIA
  8. ARACEPT [Concomitant]
  9. VITAMIN D [Concomitant]
     Dosage: DOSE ^500,000^

REACTIONS (2)
  - RESPIRATORY DISORDER [None]
  - UPPER RESPIRATORY TRACT INFECTION [None]
